FAERS Safety Report 13582208 (Version 4)
Quarter: 2020Q2

REPORT INFORMATION
  Report Type: Spontaneous
  Country: US (occurrence: US)
  Receive Date: 20170525
  Receipt Date: 20200513
  Transmission Date: 20200713
  Serious: Yes (Other)
  Sender: FDA-Public Use
  Company Number: US-PFIZER INC-2017230238

PATIENT
  Age: 52 Year
  Sex: Female

DRUGS (1)
  1. XELJANZ XR [Suspect]
     Active Substance: TOFACITINIB CITRATE
     Dosage: 11 MG, UNK

REACTIONS (16)
  - Hyperglycaemia [Unknown]
  - Sinusitis [Unknown]
  - Arthralgia [Unknown]
  - Memory impairment [Unknown]
  - Product dose omission [Unknown]
  - Headache [Unknown]
  - Neck pain [Unknown]
  - Oropharyngeal pain [Unknown]
  - Fibromyalgia [Unknown]
  - Back pain [Unknown]
  - Dysphonia [Unknown]
  - Sjogren^s syndrome [Unknown]
  - Bursitis [Unknown]
  - Pain [Unknown]
  - Spinal pain [Unknown]
  - Irritable bowel syndrome [Unknown]
